FAERS Safety Report 17274142 (Version 1)
Quarter: 2020Q1

REPORT INFORMATION
  Report Type: Report from Study
  Country: AU (occurrence: AU)
  Receive Date: 20200115
  Receipt Date: 20200115
  Transmission Date: 20200409
  Serious: Yes (Other)
  Sender: FDA-Public Use
  Company Number: AU-JNJFOC-20190608375

PATIENT
  Sex: Male

DRUGS (1)
  1. STELARA [Suspect]
     Active Substance: USTEKINUMAB
     Indication: CROHN^S DISEASE
     Route: 058
     Dates: start: 20181015, end: 201907

REACTIONS (9)
  - Malaise [Unknown]
  - Cellulitis [Not Recovered/Not Resolved]
  - Mobility decreased [Unknown]
  - Hyperhidrosis [Unknown]
  - Joint swelling [Unknown]
  - Asthenia [Unknown]
  - Skin exfoliation [Unknown]
  - Skin disorder [Not Recovered/Not Resolved]
  - Dyspnoea [Not Recovered/Not Resolved]
